FAERS Safety Report 8181031-5 (Version None)
Quarter: 2012Q1

REPORT INFORMATION
  Report Type: 
  Country: None (occurrence: None)
  Receive Date: 20120229
  Receipt Date: 20120215
  Transmission Date: 20120608
  Serious: Yes (Hospitalization)
  Sender: FDA-Public Use
  Company Number: GER/GER/12/ 0022629

PATIENT
  Age: 75 Year
  Sex: Male
  Weight: 90 kg

DRUGS (8)
  1. LEUKERAN [Concomitant]
  2. CARVEDILOL [Concomitant]
  3. CIPROFLOXACIN HYDROCHLORIDE [Suspect]
     Indication: COUGH
     Dosage: 500 MG, 2 IN 1 D, ORAL
     Route: 048
     Dates: start: 20120105, end: 20120110
  4. ENALAPRIL MALEATE [Concomitant]
  5. ADENURIC (FEBUXOSTAT) [Concomitant]
  6. ASPIRIN [Concomitant]
  7. GLIMEPIRIDE [Concomitant]
  8. SIMVASTATIN [Concomitant]

REACTIONS (7)
  - NEOPLASM PROGRESSION [None]
  - BLISTER [None]
  - CHRONIC LYMPHOCYTIC LEUKAEMIA [None]
  - MOBILITY DECREASED [None]
  - RASH [None]
  - CHONDROCALCINOSIS [None]
  - OSTEOARTHRITIS [None]
